FAERS Safety Report 21945507 (Version 1)
Quarter: 2023Q1

REPORT INFORMATION
  Report Type: Spontaneous
  Country: CA (occurrence: CA)
  Receive Date: 20230202
  Receipt Date: 20230202
  Transmission Date: 20230418
  Serious: Yes (Other)
  Sender: FDA-Public Use
  Company Number: CA-BEH-2023154872

PATIENT
  Age: 88 Year

DRUGS (2)
  1. ALBUREX [Suspect]
     Active Substance: ALBUMIN HUMAN
     Indication: Blood albumin decreased
     Dosage: 15 MILLILITER, ONCE TODAY, ONCE TOMORROW
     Route: 042
     Dates: start: 20230111, end: 20230111
  2. ALBUREX [Suspect]
     Active Substance: ALBUMIN HUMAN
     Indication: Oedema

REACTIONS (2)
  - Transfusion-related circulatory overload [Unknown]
  - Dyspnoea [Unknown]

NARRATIVE: CASE EVENT DATE: 20230111
